FAERS Safety Report 10383431 (Version 4)
Quarter: 2015Q2

REPORT INFORMATION
  Report Type: Report from Study
  Country: JP (occurrence: JP)
  Receive Date: 20140814
  Receipt Date: 20150527
  Transmission Date: 20150821
  Serious: Yes (Hospitalization)
  Sender: FDA-Public Use
  Company Number: JP-009507513-1408JPN006207

PATIENT
  Age: 74 Year
  Sex: Female
  Weight: 48 kg

DRUGS (14)
  1. URSO [Concomitant]
     Active Substance: URSODIOL
     Indication: HEPATIC CIRRHOSIS
     Dosage: 200 MG, TID, FORMULATION: POR,
     Route: 048
     Dates: end: 20130415
  2. PREDONINE [Concomitant]
     Active Substance: PREDNISOLONE\PREDNISOLONE ACETATE\PREDNISOLONE SODIUM SUCCINATE
     Indication: PROPHYLAXIS
     Dosage: FORMULATION: POR,5 MG, QD
     Route: 048
     Dates: start: 20121107, end: 20130415
  3. TAKEPRON [Concomitant]
     Active Substance: LANSOPRAZOLE
     Indication: PROPHYLAXIS AGAINST GASTROINTESTINAL ULCER
     Dosage: 15 MG, QD
     Route: 048
     Dates: start: 20121107, end: 20130415
  4. REBETOL [Suspect]
     Active Substance: RIBAVIRIN
     Dosage: 200 MG, QD
     Route: 048
     Dates: start: 20130109, end: 20130416
  5. REBETOL [Suspect]
     Active Substance: RIBAVIRIN
     Indication: HEPATIC CIRRHOSIS
     Dosage: 400 MG, QD
     Route: 048
     Dates: start: 20121107, end: 20130108
  6. ONEALFA [Concomitant]
     Active Substance: ALFACALCIDOL
     Indication: OSTEOPOROSIS PROPHYLAXIS
     Dosage: 0.5 MICROGRAM, QD, FORMULATION: POR,
     Route: 048
     Dates: start: 20121107, end: 20130415
  7. LOXONIN [Concomitant]
     Active Substance: LOXOPROFEN SODIUM
     Indication: HEPATIC CIRRHOSIS
     Dosage: AS NEEDED, FORMULATION: POR
     Route: 048
     Dates: start: 20121107, end: 20130415
  8. L CARTIN [Concomitant]
     Indication: HEPATIC CIRRHOSIS
     Dosage: 300 MG, TID, FORMULATION: POR
     Route: 048
     Dates: start: 20121107, end: 20130415
  9. TAKEPRON [Concomitant]
     Active Substance: LANSOPRAZOLE
     Dosage: 30 MG, QD
     Route: 048
     Dates: start: 20130418
  10. TAURINE [Concomitant]
     Active Substance: TAURINE
     Indication: HEPATIC CIRRHOSIS
     Dosage: 1.02 G, TID
     Route: 048
     Dates: end: 20130415
  11. PEGINTRON [Suspect]
     Active Substance: PEGINTERFERON ALFA-2B
     Indication: HEPATIC CIRRHOSIS
     Dosage: 50 MICROGRAM, QW
     Route: 058
     Dates: start: 20121107, end: 20130410
  12. LIVACT [Concomitant]
     Active Substance: AMINO ACIDS
     Indication: HEPATIC CIRRHOSIS
     Dosage: 4.15 G, TID, FORMULATION: POR
     Route: 048
     Dates: end: 20130415
  13. JUZEN-TAIHO-TO [Concomitant]
     Active Substance: UNSPECIFIED INGREDIENT
     Indication: HEPATIC CIRRHOSIS
     Dosage: 2.5 G, TID, FORMULATION: POR
     Route: 048
     Dates: start: 20121107, end: 20130415
  14. THYRADIN-S [Concomitant]
     Active Substance: LEVOTHYROXINE
     Indication: HYPOTHYROIDISM
     Dosage: 25 MICROGRAM, QD, FORMULATION: POR,
     Route: 048
     Dates: end: 20130415

REACTIONS (9)
  - Contusion [Recovered/Resolved]
  - Delirium [Recovered/Resolved]
  - Anaemia [Recovered/Resolved]
  - Gastric ulcer [Recovering/Resolving]
  - Platelet count decreased [Recovering/Resolving]
  - Insomnia [Recovered/Resolved]
  - Traumatic intracranial haemorrhage [Recovered/Resolved]
  - White blood cell count decreased [Recovering/Resolving]
  - Hypertension [Recovering/Resolving]

NARRATIVE: CASE EVENT DATE: 20130109
